FAERS Safety Report 4807594-2 (Version None)
Quarter: 2005Q4

REPORT INFORMATION
  Report Type: 
  Country: None (occurrence: None)
  Receive Date: 20051024
  Receipt Date: 20050920
  Transmission Date: 20060501
  Serious: Yes (Hospitalization)
  Sender: FDA-Public Use
  Company Number: FR-SANOFI-SYNTHELABO-A02200502448

PATIENT
  Age: 51 Year
  Sex: Male
  Weight: 90 kg

DRUGS (11)
  1. FLUOROURACIL [Suspect]
     Indication: RECTAL CANCER METASTATIC
     Route: 040
     Dates: start: 20050913, end: 20050915
  2. FLUOROURACIL [Suspect]
     Route: 041
     Dates: start: 20050718
  3. FOLINATE DE CALCIUM DAKOTA PHARM [Suspect]
     Indication: RECTAL CANCER METASTATIC
     Route: 065
     Dates: start: 20050913, end: 20050913
  4. ELOXATIN [Suspect]
     Route: 042
     Dates: start: 20050718, end: 20050718
  5. CAMPTOSAR [Suspect]
     Indication: RECTAL CANCER METASTATIC
     Route: 042
     Dates: start: 20050913, end: 20050913
  6. ZOPHREN [Suspect]
     Dosage: UNK
     Route: 042
     Dates: start: 20050718
  7. KYTRIL [Suspect]
     Dosage: UNK
     Route: 065
     Dates: start: 20050913, end: 20050913
  8. SOLU-MEDROL [Suspect]
     Route: 042
     Dates: start: 20050913, end: 20050913
  9. POLARAMINE [Suspect]
     Dosage: UNK
     Route: 042
     Dates: start: 20050913
  10. ATROPINE [Concomitant]
     Route: 042
     Dates: start: 20050913, end: 20050913
  11. MOTILYO [Concomitant]
     Dosage: UNK
     Route: 048

REACTIONS (4)
  - HAEMATURIA [None]
  - HAEMORRHAGE [None]
  - PETECHIAE [None]
  - THROMBOCYTOPENIC PURPURA [None]
